FAERS Safety Report 7428586-3 (Version None)
Quarter: 2011Q2

REPORT INFORMATION
  Report Type: 
  Country: None (occurrence: None)
  Receive Date: 20110421
  Receipt Date: 20091130
  Transmission Date: 20111010
  Serious: Yes (Death, Other)
  Sender: FDA-Public Use
  Company Number: US-BAYER-200941262NA

PATIENT
  Age: 85 Year
  Sex: Male
  Weight: 85.714 kg

DRUGS (20)
  1. LASIX [Concomitant]
     Indication: HYPERTENSION
     Dosage: 40 MG, QD
     Route: 048
  2. VANCOMYCIN [Concomitant]
     Dosage: 1 GRAM
     Route: 042
     Dates: start: 20041008
  3. PLAVIX [Concomitant]
     Dosage: 75 MG, QD
     Route: 048
  4. AMIODARONE [Concomitant]
     Dosage: 150 MG, UNK
     Route: 042
     Dates: start: 20041008
  5. ETOMIDATE [Concomitant]
     Dosage: 2 MG/ML, UNK
     Route: 042
     Dates: start: 20041008
  6. TRASYLOL [Suspect]
     Indication: CAROTID ENDARTERECTOMY
     Dosage: 1 ML, INITIAL TEST DOSE
     Route: 042
     Dates: start: 20041008, end: 20041008
  7. LOVENOX [Concomitant]
     Dosage: 90 MG, BID
     Route: 048
  8. VERAPAMIL [Concomitant]
     Dosage: 240 MG, QD
     Route: 048
  9. CEFAZOLIN [Concomitant]
     Dosage: 4 GRAM
     Route: 042
     Dates: start: 20041008
  10. TRENTAL [Concomitant]
     Dosage: 400 MG, QD
     Route: 048
  11. NITROGLYCERIN [Concomitant]
     Dosage: UNK
     Route: 042
     Dates: start: 20041008
  12. PLATELETS [Concomitant]
     Dosage: 10 U, UNK
     Route: 042
     Dates: start: 20041008
  13. ESMOLOL [Concomitant]
     Dosage: 100MG/10ML
     Route: 042
     Dates: start: 20041008
  14. TRASYLOL [Suspect]
     Indication: CORONARY ARTERY BYPASS
     Dosage: FOLLOWED BY 25ML/HOUR
     Route: 042
     Dates: start: 20041008, end: 20041008
  15. REGULAR INSULIN [Concomitant]
     Dosage: UNK
     Route: 042
     Dates: start: 20041008
  16. LOPRESSOR [Concomitant]
     Indication: HYPERTENSION
     Dosage: 50 MG, BID
     Route: 048
  17. ASPIRIN [Concomitant]
     Dosage: 81 MG, QD
     Route: 048
  18. SULAR [Concomitant]
     Dosage: 10 MG, QD
     Route: 048
  19. MILRINONE [Concomitant]
     Dosage: UNK
     Route: 042
     Dates: start: 20041008
  20. HEPARIN [Concomitant]
     Dosage: 37000 U, UNK
     Route: 042
     Dates: start: 20041008

REACTIONS (12)
  - RENAL INJURY [None]
  - STRESS [None]
  - UNEVALUABLE EVENT [None]
  - ANHEDONIA [None]
  - RENAL FAILURE [None]
  - PAIN [None]
  - ANXIETY [None]
  - DEATH [None]
  - EMOTIONAL DISTRESS [None]
  - INJURY [None]
  - FEAR [None]
  - RENAL IMPAIRMENT [None]
